FAERS Safety Report 23038985 (Version 2)
Quarter: 2025Q2

REPORT INFORMATION
  Report Type: Report from Study
  Country: IT (occurrence: IT)
  Receive Date: 20231006
  Receipt Date: 20250505
  Transmission Date: 20250716
  Serious: Yes (Other)
  Sender: AUROBINDO
  Company Number: IT-SUN PHARMACEUTICAL INDUSTRIES LTD-2023R1-398725

PATIENT
  Age: 52 Year
  Sex: Female

DRUGS (2)
  1. DOLUTEGRAVIR [Suspect]
     Active Substance: DOLUTEGRAVIR
     Indication: HIV infection
     Route: 065
  2. LAMIVUDINE [Suspect]
     Active Substance: LAMIVUDINE
     Indication: HIV infection
     Route: 065

REACTIONS (2)
  - Virologic failure [Unknown]
  - Treatment noncompliance [Unknown]
